FAERS Safety Report 6248334-2 (Version None)
Quarter: 2009Q2

REPORT INFORMATION
  Report Type: 
  Country: None (occurrence: None)
  Receive Date: 20090629
  Receipt Date: 20090618
  Transmission Date: 20091009
  Serious: Yes (Hospitalization)
  Sender: FDA-Public Use
  Company Number: PHHY2009MX23242

PATIENT
  Age: 60 Year
  Sex: Female

DRUGS (1)
  1. DIOVAN HCT [Suspect]
     Indication: HYPERTENSION
     Dosage: 1 DF (80/12.5 MG)/ DAY
     Route: 048
     Dates: start: 20030501

REACTIONS (3)
  - ANKLE FRACTURE [None]
  - CYSTOCELE REPAIR [None]
  - FALL [None]
